FAERS Safety Report 5743410-2 (Version None)
Quarter: 2008Q2

REPORT INFORMATION
  Report Type: 
  Country: None (occurrence: None)
  Receive Date: 20080516
  Receipt Date: 20080516
  Transmission Date: 20081010
  Serious: No
  Sender: FDA-Public Use
  Company Number: None

PATIENT
  Sex: Female
  Weight: 49.4421 kg

DRUGS (2)
  1. PROAMATINE [Suspect]
     Indication: SYNCOPE VASOVAGAL
     Dosage: 10MG PO TID
     Route: 048
  2. TOPROL-XL [Suspect]
     Indication: SYNCOPE VASOVAGAL
     Dosage: 50MG BID

REACTIONS (2)
  - DRUG INEFFECTIVE [None]
  - MUSCULAR WEAKNESS [None]
